FAERS Safety Report 19559818 (Version 2)
Quarter: 2021Q3

REPORT INFORMATION
  Report Type: Report from Study
  Country: CA (occurrence: CA)
  Receive Date: 20210716
  Receipt Date: 20210811
  Transmission Date: 20211014
  Serious: Yes (Other)
  Sender: FDA-Public Use
  Company Number: CA-JNJFOC-20210614316

PATIENT
  Age: 52 Year
  Sex: Female

DRUGS (2)
  1. STELARA [Suspect]
     Active Substance: USTEKINUMAB
     Indication: CROHN^S DISEASE
     Route: 058
     Dates: start: 20201124
  2. STELARA [Suspect]
     Active Substance: USTEKINUMAB
     Dosage: 12?JUN?2021, THE PATIENT RECEIVED 5TH USTEKINUMAB INJECTION FOR THE DOSE OF 90 MG.
     Route: 058
     Dates: start: 20210607

REACTIONS (6)
  - Rectal abscess [Recovered/Resolved]
  - Product use issue [Unknown]
  - Anal fistula [Unknown]
  - Crohn^s disease [Not Recovered/Not Resolved]
  - Drug level abnormal [Unknown]
  - Off label use [Unknown]

NARRATIVE: CASE EVENT DATE: 20210607
